FAERS Safety Report 22975522 (Version 2)
Quarter: 2023Q4

REPORT INFORMATION
  Report Type: Spontaneous
  Country: US (occurrence: US)
  Receive Date: 20230925
  Receipt Date: 20231030
  Transmission Date: 20240109
  Serious: Yes (Hospitalization, Other)
  Sender: FDA-Public Use
  Company Number: US-TAKEDA-2023TUS092093

PATIENT
  Age: 3 Year
  Sex: Female

DRUGS (7)
  1. GATTEX [Suspect]
     Active Substance: TEDUGLUTIDE\WATER
     Indication: Short-bowel syndrome
     Dosage: 0.7 MILLIGRAM, QD
     Route: 058
     Dates: start: 20230910, end: 20230913
  2. GATTEX [Suspect]
     Active Substance: TEDUGLUTIDE\WATER
     Indication: Short-bowel syndrome
     Dosage: 0.7 MILLIGRAM, QD
     Route: 058
     Dates: start: 20230910, end: 20230913
  3. GATTEX [Suspect]
     Active Substance: TEDUGLUTIDE\WATER
     Indication: Short-bowel syndrome
     Dosage: 0.7 MILLIGRAM, QD
     Route: 058
     Dates: start: 20230910, end: 20230913
  4. GATTEX [Suspect]
     Active Substance: TEDUGLUTIDE\WATER
     Indication: Short-bowel syndrome
     Dosage: 0.7 MILLIGRAM, QD
     Route: 058
     Dates: start: 20230910, end: 20230913
  5. BUDESONIDE [Concomitant]
     Active Substance: BUDESONIDE
     Indication: Duodenitis
     Dosage: 3 MILLIGRAM, QD
     Route: 065
     Dates: start: 20230824
  6. CIPROFLOXACIN [Concomitant]
     Active Substance: CIPROFLOXACIN
     Indication: Gastrointestinal bacterial overgrowth
     Dosage: 250 MILLIGRAM, BID
     Route: 065
     Dates: start: 20230824, end: 20230913
  7. LANSOPRAZOLE [Concomitant]
     Active Substance: LANSOPRAZOLE
     Indication: Vomiting
     Dosage: 15 MILLIGRAM, BID
     Route: 065

REACTIONS (2)
  - Seizure [Recovered/Resolved]
  - White blood cell count increased [Unknown]

NARRATIVE: CASE EVENT DATE: 20230913
